FAERS Safety Report 5449715-7 (Version None)
Quarter: 2007Q3

REPORT INFORMATION
  Report Type: 
  Country: None (occurrence: None)
  Receive Date: 20070910
  Receipt Date: 20070903
  Transmission Date: 20080115
  Serious: Yes (Other)
  Sender: FDA-Public Use
  Company Number: 2007AL003667

PATIENT
  Age: 52 Year
  Sex: Female

DRUGS (2)
  1. IBUPROFEN [Suspect]
     Indication: ARTHROPATHY
     Dosage: 400 MG;QD;PO
     Route: 048
  2. IBUPROFEN [Suspect]
     Indication: MUSCLE STRAIN
     Dosage: 400 MG;QD;PO
     Route: 048

REACTIONS (3)
  - CANDIDIASIS [None]
  - CONDITION AGGRAVATED [None]
  - LICHEN PLANUS [None]
